FAERS Safety Report 13182093 (Version 1)
Quarter: 2017Q1

REPORT INFORMATION
  Report Type: Spontaneous
  Country: US (occurrence: US)
  Receive Date: 20170203
  Receipt Date: 20170203
  Transmission Date: 20170428
  Serious: No
  Sender: FDA-Public Use
  Company Number: None

PATIENT

DRUGS (1)
  1. SODIUM CHLORIDE 0.9% SOLUTION B.BRAUN MEDICAL INC. [Suspect]
     Active Substance: SODIUM CHLORIDE
     Dosage: DOSAGE FORM - INJECTABLE?TYPE - IV MINI BAG?SIZE - 50 ML PARTIAL FILL
     Route: 042

REACTIONS (2)
  - Product preparation error [None]
  - Product label confusion [None]
